FAERS Safety Report 14620102 (Version 1)
Quarter: 2018Q1

REPORT INFORMATION
  Report Type: Spontaneous
  Country: US (occurrence: US)
  Receive Date: 20180309
  Receipt Date: 20180309
  Transmission Date: 20180509
  Serious: Yes (Other)
  Sender: FDA-Public Use
  Company Number: US-TEVA-2018-US-868045

PATIENT
  Sex: Male

DRUGS (1)
  1. NORTRIPTYLINE [Suspect]
     Active Substance: NORTRIPTYLINE
     Route: 065
     Dates: start: 2016, end: 201707

REACTIONS (6)
  - Tachyphrenia [Unknown]
  - Burning sensation [Unknown]
  - Poisoning [Unknown]
  - Agitation [Unknown]
  - Palpitations [Unknown]
  - Nausea [Unknown]
